FAERS Safety Report 14497913 (Version 1)
Quarter: 2018Q1

REPORT INFORMATION
  Report Type: Spontaneous
  Country: US (occurrence: US)
  Receive Date: 20180206
  Receipt Date: 20180206
  Transmission Date: 20180509
  Serious: Yes (Hospitalization)
  Sender: FDA-Public Use
  Company Number: None

PATIENT
  Age: 82 Year
  Sex: Female

DRUGS (1)
  1. DABIGATRAN [Suspect]
     Active Substance: DABIGATRAN

REACTIONS (6)
  - Hypotension [None]
  - Therapy cessation [None]
  - Dialysis [None]
  - Gastrointestinal haemorrhage [None]
  - Haematemesis [None]
  - Haemoglobin decreased [None]
